FAERS Safety Report 10042214 (Version 1)
Quarter: 2014Q1

REPORT INFORMATION
  Report Type: Spontaneous
  Country: IN (occurrence: IN)
  Receive Date: 20140327
  Receipt Date: 20140327
  Transmission Date: 20141002
  Serious: Yes (Other)
  Sender: FDA-Public Use
  Company Number: IN-ACTAVIS-2014-05509

PATIENT
  Age: 37 Year
  Sex: Male

DRUGS (3)
  1. PHENYTOIN (AMALLC) [Suspect]
     Indication: GRAND MAL CONVULSION
     Dosage: 20 MG/KG, UNK
     Route: 042
  2. PHENYTOIN (AMALLC) [Suspect]
     Dosage: 10 MG/KG, UNK
     Route: 042
  3. LORAZEPAM [Concomitant]
     Indication: GRAND MAL CONVULSION
     Dosage: 4 MG, SINGLE
     Route: 042

REACTIONS (1)
  - Purple glove syndrome [Unknown]
